FAERS Safety Report 15386456 (Version 1)
Quarter: 2018Q3

REPORT INFORMATION
  Report Type: Report from Study
  Country: US (occurrence: US)
  Receive Date: 20180914
  Receipt Date: 20180914
  Transmission Date: 20181010
  Serious: Yes (Hospitalization, Other)
  Sender: FDA-Public Use
  Company Number: US-GILEAD-2018-0356221

PATIENT
  Age: 54 Year
  Sex: Female

DRUGS (26)
  1. AZTREONAM LYSINE [Suspect]
     Active Substance: AZTREONAM LYSINE
     Indication: CYSTIC FIBROSIS
     Dosage: 75 MG, TID 28 DAYS ON THEN 28 DAYS OFF
     Route: 055
     Dates: start: 20150420
  2. MINERALS NOS W/VITAMINS NOS [Suspect]
     Active Substance: MINERALS\VITAMINS
     Indication: CYSTIC FIBROSIS
     Dosage: 1 DF, QD
     Route: 048
     Dates: start: 20160627
  3. PULMOZYME [Concomitant]
     Active Substance: DORNASE ALFA
  4. QUETIAPINE. [Concomitant]
     Active Substance: QUETIAPINE
  5. KALYDECO [Suspect]
     Active Substance: IVACAFTOR
     Indication: CYSTIC FIBROSIS
     Dosage: 1 DF, BID
     Route: 048
     Dates: start: 20150702
  6. VITAMIN D3 [Suspect]
     Active Substance: CHOLECALCIFEROL
     Indication: CYSTIC FIBROSIS
     Dosage: 1 DF, QD
     Route: 048
     Dates: start: 20150413
  7. GUANFACINE. [Concomitant]
     Active Substance: GUANFACINE
  8. LORATADINE. [Concomitant]
     Active Substance: LORATADINE
  9. MULTI VITAMIN                      /08408501/ [Concomitant]
     Active Substance: VITAMINS
  10. TRAMADOL. [Concomitant]
     Active Substance: TRAMADOL
  11. ACETYLCYSTEINE SODIUM [Concomitant]
     Active Substance: ACETYLCYSTEINE SODIUM
  12. ADVAIR HFA [Concomitant]
     Active Substance: FLUTICASONE PROPIONATE\SALMETEROL XINAFOATE
  13. AZITHROMYCIN ANHYDROUS. [Concomitant]
     Active Substance: AZITHROMYCIN ANHYDROUS
  14. CLONAZEPAM. [Concomitant]
     Active Substance: CLONAZEPAM
  15. SALINE                             /00075401/ [Concomitant]
     Active Substance: SODIUM CHLORIDE
  16. SODIUM CHLORIDE. [Suspect]
     Active Substance: SODIUM CHLORIDE
     Indication: CYSTIC FIBROSIS
     Dosage: 3 ML, BID
     Route: 055
     Dates: start: 20150408
  17. PROTONIX                           /00661201/ [Concomitant]
     Active Substance: OMEPRAZOLE
  18. ZOLOFT [Concomitant]
     Active Substance: SERTRALINE HYDROCHLORIDE
  19. FERROUS SULFATE. [Concomitant]
     Active Substance: FERROUS SULFATE
  20. TOPAMAX [Concomitant]
     Active Substance: TOPIRAMATE
  21. URSODIOL. [Concomitant]
     Active Substance: URSODIOL
  22. CALCIUM CITRATE [Suspect]
     Active Substance: CALCIUM CITRATE
     Indication: CYSTIC FIBROSIS
     Dosage: 1 DF, BID
     Route: 065
     Dates: start: 20160813
  23. MUCINEX [Concomitant]
     Active Substance: GUAIFENESIN
  24. PANCREAZE                          /00150201/ [Concomitant]
  25. DICLOFENAC [Concomitant]
     Active Substance: DICLOFENAC
  26. NORCO [Concomitant]
     Active Substance: ACETAMINOPHEN\HYDROCODONE BITARTRATE

REACTIONS (1)
  - Cystic fibrosis [Unknown]

NARRATIVE: CASE EVENT DATE: 20180803
